FAERS Safety Report 22131191 (Version 14)
Quarter: 2023Q2

REPORT INFORMATION
  Report Type: Spontaneous
  Country: US (occurrence: US)
  Receive Date: 20230323
  Receipt Date: 20230627
  Transmission Date: 20230721
  Serious: No
  Sender: FDA-Public Use
  Company Number: US-BIOGEN-2023BI01195028

PATIENT
  Sex: Female

DRUGS (2)
  1. TYSABRI [Suspect]
     Active Substance: NATALIZUMAB
     Indication: Multiple sclerosis
     Route: 050
     Dates: start: 20180807
  2. TYSABRI [Suspect]
     Active Substance: NATALIZUMAB
     Dosage: MAINTENANCE DOSE
     Route: 050

REACTIONS (13)
  - Bronchitis [Not Recovered/Not Resolved]
  - Deformity [Unknown]
  - Pain [Unknown]
  - Dysstasia [Unknown]
  - Otolithiasis [Unknown]
  - Balance disorder [Unknown]
  - Neck pain [Unknown]
  - Poor quality sleep [Unknown]
  - Stress [Unknown]
  - Malaise [Recovered/Resolved]
  - Illness [Recovered/Resolved]
  - Headache [Not Recovered/Not Resolved]
  - Fatigue [Not Recovered/Not Resolved]

NARRATIVE: CASE EVENT DATE: 20220101
